FAERS Safety Report 23439934 (Version 3)
Quarter: 2024Q1

REPORT INFORMATION
  Report Type: Spontaneous
  Country: US (occurrence: US)
  Receive Date: 20240124
  Receipt Date: 20240304
  Transmission Date: 20240409
  Serious: Yes (Other)
  Sender: FDA-Public Use
  Company Number: US-PFIZER INC-202400019176

PATIENT
  Age: 57 Year
  Sex: Female
  Weight: 97.4 kg

DRUGS (5)
  1. DOCETAXEL [Suspect]
     Active Substance: DOCETAXEL\DOCETAXEL ANHYDROUS
     Indication: Breast cancer female
     Dosage: 75 MG/M2 D1 Q21 DAYS
     Dates: start: 20240106, end: 20240110
  2. GEMCITABINE HYDROCHLORIDE [Suspect]
     Active Substance: GEMCITABINE HYDROCHLORIDE
     Indication: Breast cancer female
     Dosage: 1000 MG/M2 D1, D8 Q21 DAYS
     Dates: start: 20240106
  3. TAXOTERE [Suspect]
     Active Substance: DOCETAXEL
     Dosage: UNK
     Dates: start: 20240106
  4. DECADRON [Concomitant]
     Active Substance: DEXAMETHASONE
     Indication: Swelling
     Dosage: 4 MG, 2X/DAY (ONGOING AS ORDERED)
     Dates: start: 20240105
  5. DECADRON [Concomitant]
     Active Substance: DEXAMETHASONE
     Indication: Oedema

REACTIONS (1)
  - Pancytopenia [Unknown]

NARRATIVE: CASE EVENT DATE: 20240101
